FAERS Safety Report 14995120 (Version 5)
Quarter: 2020Q3

REPORT INFORMATION
  Report Type: Report from Study
  Country: AR (occurrence: AR)
  Receive Date: 20180611
  Receipt Date: 20200812
  Transmission Date: 20201102
  Serious: Yes (Other)
  Sender: FDA-Public Use
  Company Number: PHHY2018AR019506

PATIENT
  Age: 48 Year
  Sex: Female

DRUGS (2)
  1. LEBRINA [Suspect]
     Active Substance: FINGOLIMOD HYDROCHLORIDE
     Indication: PRODUCT USED FOR UNKNOWN INDICATION
     Dosage: UNK
     Route: 065
     Dates: start: 201805
  2. GILENYA [Suspect]
     Active Substance: FINGOLIMOD HYDROCHLORIDE
     Indication: MULTIPLE SCLEROSIS
     Dosage: 1 IU, QD (0.5MG)
     Route: 048
     Dates: start: 20160101

REACTIONS (8)
  - Hyperchlorhydria [Recovered/Resolved]
  - Dyspepsia [Unknown]
  - Fatigue [Unknown]
  - Abdominal discomfort [Not Recovered/Not Resolved]
  - Gait disturbance [Unknown]
  - Injury [Unknown]
  - Rash [Not Recovered/Not Resolved]
  - Diarrhoea [Not Recovered/Not Resolved]

NARRATIVE: CASE EVENT DATE: 201805
